FAERS Safety Report 25354505 (Version 1)
Quarter: 2025Q2

REPORT INFORMATION
  Report Type: Spontaneous
  Country: IT (occurrence: IT)
  Receive Date: 20250523
  Receipt Date: 20250523
  Transmission Date: 20250716
  Serious: Yes (Other)
  Sender: GILEAD
  Company Number: IT-GILEAD-2025-0714318

PATIENT
  Age: 55 Year
  Sex: Female

DRUGS (7)
  1. LENACAPAVIR [Suspect]
     Active Substance: LENACAPAVIR
     Indication: HIV infection
     Route: 048
     Dates: start: 202403
  2. LENACAPAVIR [Suspect]
     Active Substance: LENACAPAVIR
     Route: 048
     Dates: start: 202403
  3. LENACAPAVIR [Suspect]
     Active Substance: LENACAPAVIR
     Route: 058
     Dates: start: 202403
  4. DESCOVY [Suspect]
     Active Substance: EMTRICITABINE\TENOFOVIR ALAFENAMIDE FUMARATE
     Indication: HIV infection
     Dosage: 1 DOSAGE FORM, QD
     Route: 065
     Dates: start: 202403
  5. DARUNAVIR\RITONAVIR [Suspect]
     Active Substance: DARUNAVIR\RITONAVIR
     Indication: HIV infection
     Dosage: 600 MG, BID
     Route: 065
     Dates: start: 202403
  6. DOLUTEGRAVIR [Suspect]
     Active Substance: DOLUTEGRAVIR
     Indication: HIV infection
     Dosage: 50 MG, BID
     Route: 065
     Dates: start: 202403
  7. FOSTEMSAVIR [Suspect]
     Active Substance: FOSTEMSAVIR
     Indication: HIV infection
     Dosage: 600 MG, BID
     Route: 065
     Dates: start: 202403

REACTIONS (4)
  - Cytomegalovirus colitis [Unknown]
  - Injection site erythema [Recovered/Resolved]
  - Injection site induration [Recovered/Resolved]
  - Blood HIV RNA increased [Unknown]
